FAERS Safety Report 7605110-3 (Version None)
Quarter: 2011Q3

REPORT INFORMATION
  Report Type: 
  Country: None (occurrence: None)
  Receive Date: 20110713
  Receipt Date: 20110125
  Transmission Date: 20111222
  Serious: Yes (Death, Other)
  Sender: FDA-Public Use
  Company Number: US-BAYER-200940363NA

PATIENT
  Age: 69 Year
  Sex: Male
  Weight: 120 kg

DRUGS (37)
  1. AVANDIA [Concomitant]
     Dosage: 4 MG, QD
     Route: 048
  2. SPIRONOLACTONE [Concomitant]
     Dosage: 50 MG, UNK
     Route: 048
  3. ATENOLOL [Concomitant]
     Dosage: 50 MG, BID
     Route: 048
  4. NORVASC [Concomitant]
     Dosage: 5 MG, QD
     Route: 048
  5. LOVENOX [Concomitant]
     Dosage: 1MG/KG TWICE DAILY
     Route: 058
  6. INSULIN [Concomitant]
     Route: 058
  7. ACETYLSALICYLIC ACID SRT [Concomitant]
     Dosage: 81 MG, QD
     Route: 048
     Dates: start: 19960101
  8. HEPARIN [Concomitant]
     Dosage: UNK
     Route: 042
     Dates: start: 20051026
  9. TRASYLOL [Suspect]
     Indication: CORONARY ARTERY BYPASS
     Dosage: 1 ML TEST, 200 ML LOADING, 50 ML/HR
     Route: 042
     Dates: start: 20051026, end: 20051026
  10. PLAVIX [Concomitant]
     Dosage: 75 MG, QD
     Route: 048
  11. FENTANYL-100 [Concomitant]
     Dosage: UNK
     Route: 042
     Dates: start: 20051026
  12. GLUCOTROL XL [Concomitant]
     Dosage: 5 MG, QD
     Route: 048
  13. GLUCOPHAGE [Concomitant]
     Dosage: 500 MG, BID
     Route: 048
  14. CEPHALEXIN [Concomitant]
     Dosage: 500 MG, UNK
     Route: 048
  15. HUMULIN 70/30 [Concomitant]
  16. LASIX [Concomitant]
     Dosage: 80 MG, QD
     Route: 048
  17. MIDAZOLAM HCL [Concomitant]
     Dosage: UNK
     Route: 042
     Dates: start: 20051026
  18. VYTORIN [Concomitant]
  19. HUMALOG [Concomitant]
     Dosage: 200 MG, UNK
     Route: 048
  20. NOVOLIN R [Concomitant]
     Route: 058
  21. COUMADIN [Concomitant]
     Dosage: 7.5 MG, UNK
     Route: 048
  22. LASIX [Concomitant]
     Dosage: 80 MG, UNK
     Route: 048
  23. AMITIZA [Concomitant]
     Dosage: 24 MCG
     Route: 048
  24. PROTAMINE SULFATE [Concomitant]
     Dosage: UNK
     Route: 042
     Dates: start: 20051026, end: 20051026
  25. CEFAZOLIN [Concomitant]
     Dosage: 2000 MG, UNK
     Route: 042
     Dates: start: 20051026
  26. DURAGESIC-100 [Concomitant]
     Dosage: 0.2 MG, QD
     Route: 062
  27. DURAGESIC-100 [Concomitant]
     Dosage: UNK
     Route: 042
     Dates: start: 20051026
  28. RED BLOOD CELLS [Concomitant]
     Dosage: 1 U, UNK
     Dates: start: 20051026
  29. AMOXIL [Concomitant]
     Dosage: 500 MG, UNK
     Route: 048
  30. IBUPROFEN [Concomitant]
     Route: 048
  31. PERSANTINE [Concomitant]
     Dosage: 75 MG, QD
     Route: 048
  32. FRESH FROZEN PLASMA [Concomitant]
     Dosage: 2 U, UNK
     Dates: start: 20051026
  33. CEPHALEXIN [Concomitant]
     Dosage: 500 MG, UNK
     Route: 048
  34. ATENOLOL [Concomitant]
     Dosage: 50 MG, UNK
     Route: 048
  35. GLIPIZIDE [Concomitant]
     Dosage: 5 MG, UNK
     Route: 048
  36. GLUCOVANCE [Concomitant]
     Dosage: 2.5/500MG TWICE DAILY
     Route: 048
  37. PLATELETS [Concomitant]
     Dosage: 6 U, UNK
     Dates: start: 20051026

REACTIONS (16)
  - RENAL IMPAIRMENT [None]
  - BLINDNESS UNILATERAL [None]
  - ANXIETY [None]
  - DEATH [None]
  - CEREBROVASCULAR ACCIDENT [None]
  - RENAL DISORDER [None]
  - STRESS [None]
  - FEAR [None]
  - PAIN [None]
  - INJURY [None]
  - UNEVALUABLE EVENT [None]
  - RENAL FAILURE [None]
  - MULTI-ORGAN FAILURE [None]
  - ANHEDONIA [None]
  - RENAL INJURY [None]
  - EMOTIONAL DISTRESS [None]
